FAERS Safety Report 6704706-0 (Version None)
Quarter: 2010Q2

REPORT INFORMATION
  Report Type: 
  Country: None (occurrence: None)
  Receive Date: 20100430
  Receipt Date: 20100421
  Transmission Date: 20101027
  Serious: No
  Sender: FDA-Public Use
  Company Number: US-CEPHALON-US024758

PATIENT
  Sex: Female
  Weight: 61 kg

DRUGS (8)
  1. FENTORA [Suspect]
     Indication: NEURALGIA
     Route: 002
  2. FENTORA [Suspect]
     Indication: SYSTEMIC LUPUS ERYTHEMATOSUS
  3. ACTIQ [Suspect]
     Indication: NEURALGIA
     Route: 002
     Dates: start: 20050101
  4. ACTIQ [Suspect]
     Indication: SYSTEMIC LUPUS ERYTHEMATOSUS
     Route: 002
     Dates: start: 20050101
  5. OXYCODONE [Concomitant]
  6. MORPHINE [Concomitant]
  7. METHADONE HCL [Concomitant]
     Dates: start: 20040101
  8. METHADONE HCL [Concomitant]
     Dates: start: 20100401

REACTIONS (3)
  - APPLICATION SITE PAIN [None]
  - DRUG DIVERSION [None]
  - DRUG PRESCRIBING ERROR [None]
